FAERS Safety Report 16416095 (Version 1)
Quarter: 2019Q2

REPORT INFORMATION
  Report Type: Spontaneous
  Country: US (occurrence: US)
  Receive Date: 20190611
  Receipt Date: 20190611
  Transmission Date: 20190711
  Serious: No
  Sender: FDA-Public Use
  Company Number: US-JUBILANT CADISTA PHARMACEUTICALS-2019JUB00107

PATIENT
  Sex: Female
  Weight: 86.17 kg

DRUGS (3)
  1. PROTONIX [Concomitant]
     Active Substance: PANTOPRAZOLE SODIUM
  2. SPIRONOLACTONE. [Suspect]
     Active Substance: SPIRONOLACTONE
     Indication: HYPERTENSION
     Dosage: 50 MG, 1X/DAY AT BEDTIME
     Route: 048
  3. SPIRONOLACTONE. [Suspect]
     Active Substance: SPIRONOLACTONE
     Dosage: 50 MG, 1X/DAY AT BEDTIME
     Route: 048
     Dates: start: 2019

REACTIONS (4)
  - Drug ineffective [Not Recovered/Not Resolved]
  - Peripheral swelling [Recovering/Resolving]
  - Joint swelling [Recovering/Resolving]
  - Headache [Recovering/Resolving]
